FAERS Safety Report 11557429 (Version 2)
Quarter: 2015Q4

REPORT INFORMATION
  Report Type: Report from Study
  Country: AU (occurrence: AU)
  Receive Date: 20150925
  Receipt Date: 20151023
  Transmission Date: 20160304
  Serious: Yes (Life-Threatening, Hospitalization, Disabling, Other)
  Sender: FDA-Public Use
  Company Number: AU-ASTRAZENECA-2015SE84679

PATIENT
  Age: 25162 Day
  Sex: Male

DRUGS (11)
  1. AZD6140 [Suspect]
     Active Substance: TICAGRELOR
     Indication: ISCHAEMIC HEART DISEASE PROPHYLAXIS
     Route: 048
     Dates: start: 20150605, end: 20150612
  2. ATORVASTATIN [Concomitant]
     Active Substance: ATORVASTATIN
     Dates: start: 20150604
  3. COVERSYL [Concomitant]
     Active Substance: PERINDOPRIL
  4. MAGMIN [Concomitant]
     Active Substance: MAGNESIUM ASPARTATE
     Dates: start: 20150605
  5. DUOTRAV [Concomitant]
     Active Substance: TIMOLOL MALEATE\TRAVOPROST
     Dates: start: 20150611
  6. AZD6140 [Suspect]
     Active Substance: TICAGRELOR
     Indication: ISCHAEMIC HEART DISEASE PROPHYLAXIS
     Route: 048
     Dates: start: 20150604, end: 20150604
  7. PREDNISONE. [Concomitant]
     Active Substance: PREDNISONE
     Dates: start: 20150613
  8. AZD6140 [Suspect]
     Active Substance: TICAGRELOR
     Indication: ISCHAEMIC HEART DISEASE PROPHYLAXIS
     Route: 048
     Dates: start: 20150615
  9. PARACETAMOL [Concomitant]
     Active Substance: ACETAMINOPHEN
     Dates: start: 20150604
  10. PREDNISONE. [Concomitant]
     Active Substance: PREDNISONE
     Dates: start: 20150609, end: 20150612
  11. LORATADINE. [Concomitant]
     Active Substance: LORATADINE
     Dates: start: 20150606

REACTIONS (1)
  - Angina pectoris [Recovering/Resolving]

NARRATIVE: CASE EVENT DATE: 20150829
